FAERS Safety Report 16243600 (Version 3)
Quarter: 2019Q3

REPORT INFORMATION
  Report Type: Spontaneous
  Country: US (occurrence: US)
  Receive Date: 20190426
  Receipt Date: 20190705
  Transmission Date: 20191004
  Serious: Yes (Other)
  Sender: FDA-Public Use
  Company Number: US-BAYER-2019-082149

PATIENT
  Age: 36 Year
  Sex: Female
  Weight: 58 kg

DRUGS (2)
  1. MIRENA [Suspect]
     Active Substance: LEVONORGESTREL
     Indication: CONTRACEPTION
     Dosage: 20 MCG/24HR, CONT
     Route: 015
     Dates: start: 20160404, end: 20190422
  2. MIRENA [Suspect]
     Active Substance: LEVONORGESTREL

REACTIONS (13)
  - Complication of device removal [Not Recovered/Not Resolved]
  - Breast pain [None]
  - Vaginal haemorrhage [Recovered/Resolved]
  - Complication of device removal [None]
  - Female sexual dysfunction [None]
  - Device breakage [Not Recovered/Not Resolved]
  - Embedded device [Not Recovered/Not Resolved]
  - Dyspareunia [None]
  - Device use issue [Recovering/Resolving]
  - Abdominal pain lower [Recovered/Resolved]
  - Device difficult to use [None]
  - Procedural haemorrhage [None]
  - Menorrhagia [Recovered/Resolved]

NARRATIVE: CASE EVENT DATE: 20160504
